FAERS Safety Report 18290775 (Version 1)
Quarter: 2020Q3

REPORT INFORMATION
  Report Type: Spontaneous
  Country: CO (occurrence: CO)
  Receive Date: 20200921
  Receipt Date: 20200921
  Transmission Date: 20201103
  Serious: Yes (Death)
  Sender: FDA-Public Use
  Company Number: CO-BAYER-2020-172084

PATIENT
  Age: 57 Year
  Sex: Female

DRUGS (1)
  1. ADEMPAS [Suspect]
     Active Substance: RIOCIGUAT
     Dosage: 7.5 MG
     Route: 055

REACTIONS (6)
  - Nasopharyngitis [Fatal]
  - Dyspnoea [Fatal]
  - Pyrexia [Fatal]
  - Asthenia [Fatal]
  - Cardiac arrest [Fatal]
  - Respiratory failure [Fatal]
